FAERS Safety Report 6699946-3 (Version None)
Quarter: 2010Q2

REPORT INFORMATION
  Report Type: 
  Country: None (occurrence: None)
  Receive Date: 20100428
  Receipt Date: 20100416
  Transmission Date: 20101027
  Serious: Yes (Hospitalization, Other)
  Sender: FDA-Public Use
  Company Number: PHHY2008CO31771

PATIENT
  Age: 54 Year
  Sex: Female

DRUGS (1)
  1. RASILEZ [Suspect]
     Dosage: 300 MG, DAILY
     Route: 048

REACTIONS (2)
  - DRUG INEFFECTIVE [None]
  - HYPERTENSIVE CRISIS [None]
